FAERS Safety Report 7282667-6 (Version None)
Quarter: 2011Q1

REPORT INFORMATION
  Report Type: 
  Country: None (occurrence: None)
  Receive Date: 20110209
  Receipt Date: 20110201
  Transmission Date: 20110831
  Serious: Yes (Life-Threatening, Hospitalization, Other)
  Sender: FDA-Public Use
  Company Number: DE-ABBOTT-10P-062-0663613-00

PATIENT
  Sex: Female
  Weight: 80 kg

DRUGS (27)
  1. PANTOZOL [Concomitant]
     Indication: PRODUCT USED FOR UNKNOWN INDICATION
  2. STRONTIUMRANELAT [Concomitant]
     Indication: PRODUCT USED FOR UNKNOWN INDICATION
  3. DEKRISTOL [Concomitant]
     Indication: PRODUCT USED FOR UNKNOWN INDICATION
     Dosage: DAILY DOSE: 400MG
  4. AMITRIPTYLINE HCL [Concomitant]
     Indication: PRODUCT USED FOR UNKNOWN INDICATION
  5. ACT [Concomitant]
     Indication: PRODUCT USED FOR UNKNOWN INDICATION
     Dosage: DAILY DOSE: 25MG
  6. CLEXANE [Concomitant]
     Indication: PRODUCT USED FOR UNKNOWN INDICATION
  7. MORPHINE [Concomitant]
     Indication: PRODUCT USED FOR UNKNOWN INDICATION
     Route: 062
     Dates: start: 20100821
  8. CELECOXIB [Concomitant]
     Indication: PRODUCT USED FOR UNKNOWN INDICATION
  9. FENTANYL [Concomitant]
     Indication: PRODUCT USED FOR UNKNOWN INDICATION
  10. HUMIRA [Suspect]
     Indication: RHEUMATOID ARTHRITIS
     Dates: start: 20100601, end: 20100701
  11. PREDNISOLONE [Concomitant]
     Indication: PRODUCT USED FOR UNKNOWN INDICATION
  12. CALCIUM WITH VITAMIN D3 [Concomitant]
     Indication: PRODUCT USED FOR UNKNOWN INDICATION
  13. LEVODOPA W/BENSERAZIDE [Concomitant]
     Indication: PRODUCT USED FOR UNKNOWN INDICATION
  14. MOVICOL [Concomitant]
     Indication: PRODUCT USED FOR UNKNOWN INDICATION
  15. FALITHROM [Concomitant]
     Indication: PRODUCT USED FOR UNKNOWN INDICATION
  16. HUMIRA [Suspect]
     Indication: ANKYLOSING SPONDYLITIS
  17. TOLPERISON [Concomitant]
     Indication: PRODUCT USED FOR UNKNOWN INDICATION
  18. PHENPROCOUMON [Concomitant]
     Indication: PRODUCT USED FOR UNKNOWN INDICATION
     Dosage: ACCORDING TO QUICK/INR
  19. CIPRAMIL [Concomitant]
     Indication: PRODUCT USED FOR UNKNOWN INDICATION
     Dosage: DAILY DOSE: 20MG
  20. CARVEDILOL [Concomitant]
     Indication: PRODUCT USED FOR UNKNOWN INDICATION
     Dosage: DAILY DOSE: 12.5MG
  21. PROTELOS [Concomitant]
     Indication: PRODUCT USED FOR UNKNOWN INDICATION
     Dosage: DAILY DOSE: 2GM
  22. LEVOTHYROXINE SODIUM [Concomitant]
     Indication: PRODUCT USED FOR UNKNOWN INDICATION
     Dosage: DAILY DOSE: 100MG IN MORNING
  23. KALIUM [Concomitant]
     Indication: PRODUCT USED FOR UNKNOWN INDICATION
     Dosage: EFFERVESCENT TABLET,BID
  24. SULTAMICILLIN [Concomitant]
     Indication: PRODUCT USED FOR UNKNOWN INDICATION
  25. RAMIPRIL [Concomitant]
     Indication: PRODUCT USED FOR UNKNOWN INDICATION
     Dosage: DAILY DOSE: 5MG,MORNING
  26. GLUCOCORTICOIDS [Concomitant]
     Indication: PRODUCT USED FOR UNKNOWN INDICATION
     Dosage: 20 MG DAILY
     Dates: start: 20100823
  27. NOVALGIN [Concomitant]
     Indication: PRODUCT USED FOR UNKNOWN INDICATION

REACTIONS (9)
  - ABSCESS [None]
  - TREATMENT FAILURE [None]
  - PNEUMONIA [None]
  - INFECTION [None]
  - OSTEOARTHRITIS [None]
  - PULMONARY ARTERY THROMBOSIS [None]
  - THROMBOSIS [None]
  - DEPRESSION [None]
  - MUSCLE ABSCESS [None]
